FAERS Safety Report 21362261 (Version 3)
Quarter: 2022Q4

REPORT INFORMATION
  Report Type: Report from Study
  Country: CA (occurrence: CA)
  Receive Date: 20220922
  Receipt Date: 20221004
  Transmission Date: 20230112
  Serious: Yes (Other)
  Sender: FDA-Public Use
  Company Number: CA-ABBVIE-4128173

PATIENT
  Sex: Male

DRUGS (1)
  1. LUPRON [Suspect]
     Active Substance: LEUPROLIDE ACETATE
     Indication: Prostate cancer
     Route: 030
     Dates: start: 20220815

REACTIONS (3)
  - Neoplasm [Unknown]
  - Prostatic specific antigen decreased [Unknown]
  - Neoplasm prostate [Unknown]

NARRATIVE: CASE EVENT DATE: 20220101
